FAERS Safety Report 18393707 (Version 1)
Quarter: 2020Q4

REPORT INFORMATION
  Report Type: Spontaneous
  Country: GB (occurrence: GB)
  Receive Date: 20201016
  Receipt Date: 20201016
  Transmission Date: 20210114
  Serious: Yes (Other)
  Sender: FDA-Public Use
  Company Number: NVSC2020GB275189

PATIENT
  Age: 70 Year

DRUGS (1)
  1. PENICILLIN SANDOZ [Suspect]
     Active Substance: PENICILLIN
     Indication: PRODUCT USED FOR UNKNOWN INDICATION
     Dosage: UNK
     Route: 065

REACTIONS (6)
  - Lower respiratory tract infection [Unknown]
  - Cough [Unknown]
  - Feeling abnormal [Unknown]
  - Nightmare [Unknown]
  - Swelling face [Unknown]
  - Eczema [Unknown]
